FAERS Safety Report 24048846 (Version 1)
Quarter: 2024Q3

REPORT INFORMATION
  Report Type: Spontaneous
  Country: US (occurrence: US)
  Receive Date: 20240704
  Receipt Date: 20240704
  Transmission Date: 20241016
  Serious: Yes (Other)
  Sender: GRAVITI PHARMACEUTICALS
  Company Number: US-GRAVITIPHARMA-GRA-2406-US-LIT-0227

PATIENT

DRUGS (2)
  1. BACLOFEN [Suspect]
     Active Substance: BACLOFEN
     Indication: Product used for unknown indication
     Dosage: 213 MICROGRAM PER DAY BACLOFEN DOSE AT TIME OF POSITIVE PREGNANCY
     Route: 064
  2. BACLOFEN [Suspect]
     Active Substance: BACLOFEN
     Dosage: BACLOFEN DOSE INCREASED DURING PREGNANCY
     Route: 064

REACTIONS (1)
  - Polyhydramnios [Unknown]
